FAERS Safety Report 10501498 (Version 1)
Quarter: 2014Q4

REPORT INFORMATION
  Report Type: Spontaneous
  Country: US (occurrence: None)
  Receive Date: 20141006
  Receipt Date: 20141006
  Transmission Date: 20150528
  Serious: No
  Sender: FDA-Public Use
  Company Number: None

PATIENT
  Age: 64 Year
  Sex: Female
  Weight: 50.8 kg

DRUGS (2)
  1. CIPROFLOXACIN HCL [Suspect]
     Active Substance: CIPROFLOXACIN HYDROCHLORIDE
     Indication: SINUSITIS
     Dosage: 1 TABLET 2X PER DAY  TWICE DAILY TAKEN BY MOUTH
     Route: 048
     Dates: start: 20140913, end: 20140915
  2. CIPROFLOXACIN HCL [Suspect]
     Active Substance: CIPROFLOXACIN HYDROCHLORIDE
     Indication: TONSILLITIS
     Dosage: 1 TABLET 2X PER DAY  TWICE DAILY TAKEN BY MOUTH
     Route: 048
     Dates: start: 20140913, end: 20140915

REACTIONS (2)
  - Middle insomnia [None]
  - Palpitations [None]

NARRATIVE: CASE EVENT DATE: 20140913
